FAERS Safety Report 25364238 (Version 1)
Quarter: 2025Q2

REPORT INFORMATION
  Report Type: Spontaneous
  Country: CN (occurrence: CN)
  Receive Date: 20250527
  Receipt Date: 20250527
  Transmission Date: 20250716
  Serious: Yes (Other)
  Sender: Kenvue
  Company Number: CN-KENVUE-20250509385

PATIENT

DRUGS (1)
  1. IBUPROFEN [Suspect]
     Active Substance: IBUPROFEN
     Indication: Antipyresis
     Route: 048
     Dates: start: 20250513

REACTIONS (6)
  - Oedema [Recovering/Resolving]
  - Herpes virus infection [Recovering/Resolving]
  - Tonsillar hypertrophy [Recovering/Resolving]
  - Incorrect dose administered [Unknown]
  - Pharyngeal haemorrhage [Recovering/Resolving]
  - Drug hypersensitivity [Recovering/Resolving]

NARRATIVE: CASE EVENT DATE: 20250513
